FAERS Safety Report 5158105-6 (Version None)
Quarter: 2006Q4

REPORT INFORMATION
  Report Type: 
  Country: None (occurrence: None)
  Receive Date: 20061127
  Receipt Date: 20061116
  Transmission Date: 20070319
  Serious: Yes (Other)
  Sender: FDA-Public Use
  Company Number: US-MERCK-0611USA04974

PATIENT
  Age: 70 Year
  Sex: Female
  Weight: 79 kg

DRUGS (2)
  1. ZOCOR [Suspect]
     Route: 048
     Dates: start: 20010301, end: 20050201
  2. ZOCOR [Suspect]
     Route: 048
     Dates: start: 20050201, end: 20060913

REACTIONS (18)
  - ABASIA [None]
  - ABDOMINAL DISCOMFORT [None]
  - ARTHRALGIA [None]
  - ASTHENIA [None]
  - BLOOD CHOLESTEROL INCREASED [None]
  - BURNING SENSATION [None]
  - FALL [None]
  - JOINT CREPITATION [None]
  - JOINT SPRAIN [None]
  - MEDIAL TIBIAL STRESS SYNDROME [None]
  - MORTON'S NEUROMA [None]
  - MUSCLE SPASMS [None]
  - MUSCULAR WEAKNESS [None]
  - MYALGIA [None]
  - OEDEMA PERIPHERAL [None]
  - OSTEOARTHRITIS [None]
  - PAIN IN EXTREMITY [None]
  - PARAESTHESIA [None]
